FAERS Safety Report 13553066 (Version 2)
Quarter: 2017Q2

REPORT INFORMATION
  Report Type: Spontaneous
  Country: US (occurrence: US)
  Receive Date: 20170517
  Receipt Date: 20170529
  Transmission Date: 20170830
  Serious: Yes (Hospitalization, Other)
  Sender: FDA-Public Use
  Company Number: US-AUROBINDO-AUR-APL-2017-33939

PATIENT
  Age: 82 Year
  Sex: Male

DRUGS (4)
  1. CEFTRIAXONE. [Concomitant]
     Active Substance: CEFTRIAXONE
     Indication: ANTIBIOTIC THERAPY
     Route: 065
  2. ACICLOVIR [Suspect]
     Active Substance: ACYCLOVIR
     Indication: HERPES ZOSTER
     Dosage: UNK
     Route: 065
  3. VALACICLOVIR 1000MG [Suspect]
     Active Substance: VALACYCLOVIR HYDROCHLORIDE
     Indication: HERPES ZOSTER
     Dosage: 1 G, 3 TIMES A DAY
     Route: 065
  4. AMPICILLIN [Concomitant]
     Active Substance: AMPICILLIN
     Indication: ANTIBIOTIC THERAPY
     Route: 065

REACTIONS (3)
  - Overdose [Recovered/Resolved]
  - Toxic encephalopathy [Recovered/Resolved]
  - Drug prescribing error [Recovered/Resolved]
